FAERS Safety Report 10498262 (Version 1)
Quarter: 2014Q3

REPORT INFORMATION
  Report Type: Spontaneous
  Country: US (occurrence: None)
  Receive Date: 20140815
  Receipt Date: 20140815
  Transmission Date: 20150326
  Serious: Yes (Hospitalization)
  Sender: FDA-Public Use
  Company Number: ADR-2013-02317

PATIENT
  Age: 60 Year
  Sex: Male

DRUGS (2)
  1. LIORESAL [Suspect]
     Active Substance: BACLOFEN
     Indication: MUSCLE SPASTICITY
  2. ORAL BACLOFEN [Suspect]
     Active Substance: BACLOFEN

REACTIONS (7)
  - Dizziness [None]
  - Feeling jittery [None]
  - Muscle tightness [None]
  - Muscle spasms [None]
  - Flushing [None]
  - Pain [None]
  - Muscle spasticity [None]

NARRATIVE: CASE EVENT DATE: 20131211
